FAERS Safety Report 20903615 (Version 1)
Quarter: 2022Q2

REPORT INFORMATION
  Report Type: Spontaneous
  Country: FR (occurrence: FR)
  Receive Date: 20220602
  Receipt Date: 20220602
  Transmission Date: 20220720
  Serious: Yes (Hospitalization)
  Sender: FDA-Public Use
  Company Number: None

PATIENT
  Age: 68 Year
  Sex: Female
  Weight: 47.5 kg

DRUGS (19)
  1. CARBOPLATIN [Suspect]
     Active Substance: CARBOPLATIN
     Indication: Breast cancer
     Dosage: UNIT DOSE: 1 DF MG, FREQUENCY : 21 DAYS
     Route: 042
     Dates: start: 20220331, end: 20220331
  2. AMLODIPINE [Suspect]
     Active Substance: AMLODIPINE BESYLATE
     Indication: Hypertension
     Dosage: UNIT DOSE: 5 MG, FREQUENCY : 1 DAYS
     Route: 048
     Dates: start: 20220402, end: 20220407
  3. GEMCITABINE [Suspect]
     Active Substance: GEMCITABINE
     Indication: Breast cancer
     Dosage: UNIT DOSE: 1 DF, FREQUENCY:21 DAYS
     Route: 042
     Dates: start: 20220331, end: 20220331
  4. AMITRIPTYLINE HYDROCHLORIDE [Suspect]
     Active Substance: AMITRIPTYLINE HYDROCHLORIDE
     Indication: Analgesic intervention supportive therapy
     Dosage: 50 MG/2 ML, ,UNIT DOSE: 3 MG, FREQUENCY : 1 HOURS
     Route: 042
     Dates: start: 20220329, end: 20220403
  5. OXYCODONE [Suspect]
     Active Substance: OXYCODONE
     Indication: Analgesic intervention supportive therapy
     Dosage: UNIT DOSE: 5 MG, FREQUENCY : 1 HOURS
     Route: 041
     Dates: start: 20220329, end: 20220403
  6. ACETAMINOPHEN [Concomitant]
     Active Substance: ACETAMINOPHEN
  7. FENTANYL [Concomitant]
     Active Substance: FENTANYL
  8. MINERAL OIL [Concomitant]
     Active Substance: MINERAL OIL
  9. OXAZEPAM [Concomitant]
     Active Substance: OXAZEPAM
  10. LOVENOX [Concomitant]
     Active Substance: ENOXAPARIN SODIUM
  11. PANTOPRAZOLE [Concomitant]
     Active Substance: PANTOPRAZOLE
  12. LEVOTHYROXINE [Concomitant]
     Active Substance: LEVOTHYROXINE
  13. METFORMIN HYDROCHLORIDE [Concomitant]
     Active Substance: METFORMIN HYDROCHLORIDE
  14. CHOLECALCIFEROL [Concomitant]
     Active Substance: CHOLECALCIFEROL
  15. KARDEGIC [Concomitant]
     Active Substance: ASPIRIN DL-LYSINE
  16. RAMIPRIL [Concomitant]
     Active Substance: RAMIPRIL
  17. BISOPROLOL FUMARATE [Concomitant]
     Active Substance: BISOPROLOL FUMARATE
  18. NALOXEGOL OXALATE [Concomitant]
     Active Substance: NALOXEGOL OXALATE
  19. ATORVASTATIN [Concomitant]
     Active Substance: ATORVASTATIN

REACTIONS (1)
  - Rash maculo-papular [Recovered/Resolved]

NARRATIVE: CASE EVENT DATE: 20220404
